FAERS Safety Report 9323989 (Version 7)
Quarter: 2014Q1

REPORT INFORMATION
  Report Type: Report from Study
  Country: JP (occurrence: JP)
  Receive Date: 20130603
  Receipt Date: 20140220
  Transmission Date: 20141002
  Serious: Yes (Death, Hospitalization)
  Sender: FDA-Public Use
  Company Number: JP-PFIZER INC-2013163251

PATIENT
  Age: 73 Year
  Sex: Male
  Weight: 74.4 kg

DRUGS (12)
  1. XALKORI [Suspect]
     Indication: NON-SMALL CELL LUNG CANCER
     Dosage: 250 MG, 2X/DAY
     Route: 048
     Dates: start: 20120814, end: 20130125
  2. XALKORI [Suspect]
     Dosage: 250 MG, 2X/DAY
     Route: 048
     Dates: start: 20130225, end: 20130517
  3. CODEINE PHOSPHATE [Concomitant]
     Dosage: 20 MG, 3X/DAY
     Route: 048
     Dates: end: 20120830
  4. MAGMITT [Concomitant]
     Dosage: 330 MG, 3X/DAY
  5. SENNOSIDE [Concomitant]
     Dosage: 24 MG, 1X/DAY
     Route: 048
  6. TRAVELMIN [Concomitant]
     Dosage: 1 DF, AS NEEDED
     Route: 048
     Dates: start: 20120903, end: 20130125
  7. PANTOSIN [Concomitant]
     Dosage: 0.5 G, 3X/DAY
     Route: 048
     Dates: start: 20121210
  8. FENTOS TAPE [Concomitant]
     Dosage: 1 MG, 1X/DAY
     Route: 062
     Dates: start: 20130312, end: 20130516
  9. ISOBIDE [Concomitant]
  10. DAI-KENCHU-TO [Concomitant]
  11. NEXIUM [Concomitant]
  12. ANTEBATE [Concomitant]

REACTIONS (1)
  - Pulmonary alveolar haemorrhage [Fatal]
